FAERS Safety Report 10314002 (Version 3)
Quarter: 2014Q3

REPORT INFORMATION
  Report Type: Report from Study
  Country: PL (occurrence: PL)
  Receive Date: 20140718
  Receipt Date: 20140807
  Transmission Date: 20150326
  Serious: Yes (Other)
  Sender: FDA-Public Use
  Company Number: PL-BAYER-2014-076421

PATIENT
  Age: 30 Year
  Sex: Female

DRUGS (3)
  1. BETAFERON [Suspect]
     Active Substance: INTERFERON BETA-1B
     Indication: MULTIPLE SCLEROSIS
     Dosage: 250 ?G, QOD
     Dates: start: 20140625, end: 20140707
  2. BETAFERON [Suspect]
     Active Substance: INTERFERON BETA-1B
     Indication: MULTIPLE SCLEROSIS
     Dosage: UNK, Q72HR
     Dates: start: 201405, end: 201406
  3. BETAFERON [Suspect]
     Active Substance: INTERFERON BETA-1B
     Indication: MULTIPLE SCLEROSIS
     Dosage: 250 ?G, QOD
     Dates: start: 20140423, end: 201405

REACTIONS (6)
  - Loss of consciousness [None]
  - Convulsion [None]
  - White blood cell count decreased [Recovered/Resolved]
  - Syncope [None]
  - Abdominal pain [None]
  - Fall [None]

NARRATIVE: CASE EVENT DATE: 201405
